FAERS Safety Report 14180560 (Version 1)
Quarter: 2017Q4

REPORT INFORMATION
  Report Type: Spontaneous
  Country: US (occurrence: US)
  Receive Date: 20171110
  Receipt Date: 20171110
  Transmission Date: 20180321
  Serious: No
  Sender: FDA-Public Use
  Company Number: US-LEXICON PHARMACEUTICALS, INC-17-1606-01039

PATIENT
  Age: 71 Year
  Sex: Female

DRUGS (20)
  1. TELOTRISTAT ETHYL [Suspect]
     Active Substance: TELOTRISTAT ETHYL
     Indication: CARCINOID SYNDROME
     Route: 048
     Dates: start: 20170929
  2. ZOFRAN [Concomitant]
     Active Substance: ONDANSETRON HYDROCHLORIDE
  3. CALCITRIOL. [Concomitant]
     Active Substance: CALCITRIOL
  4. MULTIVITAMIN [Concomitant]
     Active Substance: VITAMINS
  5. SOMATULINE DEPOT [Concomitant]
     Active Substance: LANREOTIDE ACETATE
  6. FAMOTIDINE. [Concomitant]
     Active Substance: FAMOTIDINE
  7. LISINOPRIL. [Concomitant]
     Active Substance: LISINOPRIL
  8. POTASSIUM CHLORIDE. [Concomitant]
     Active Substance: POTASSIUM CHLORIDE
  9. CARVEDILOL. [Concomitant]
     Active Substance: CARVEDILOL
  10. CITRACAL [Concomitant]
     Active Substance: CALCIUM CITRATE
  11. EVISTA [Concomitant]
     Active Substance: RALOXIFENE HYDROCHLORIDE
  12. REQUIP [Concomitant]
     Active Substance: ROPINIROLE HYDROCHLORIDE
  13. SIMETHICONE (DIMETHICONE) [Concomitant]
     Active Substance: DIMETHICONE
  14. WELCHOL [Concomitant]
     Active Substance: COLESEVELAM HYDROCHLORIDE
  15. VITAMIN D3 [Concomitant]
     Active Substance: CHOLECALCIFEROL
  16. BUMETANIDE. [Concomitant]
     Active Substance: BUMETANIDE
  17. LOMOTIL [Concomitant]
     Active Substance: ATROPINE SULFATE\DIPHENOXYLATE HYDROCHLORIDE
  18. ASPIRIN. [Concomitant]
     Active Substance: ASPIRIN
  19. LANSOPRAZOLE. [Concomitant]
     Active Substance: LANSOPRAZOLE
  20. LEXAPRO [Concomitant]
     Active Substance: ESCITALOPRAM OXALATE

REACTIONS (1)
  - Eye swelling [Recovering/Resolving]

NARRATIVE: CASE EVENT DATE: 20171010
